FAERS Safety Report 17546858 (Version 1)
Quarter: 2020Q1

REPORT INFORMATION
  Report Type: Spontaneous
  Country: US (occurrence: US)
  Receive Date: 20200309
  Receipt Date: 20200309
  Transmission Date: 20200409
  Serious: Yes (Death)
  Sender: FDA-Public Use
  Company Number: None

PATIENT
  Sex: Male

DRUGS (22)
  1. VOTRIENT [Suspect]
     Active Substance: PAZOPANIB HYDROCHLORIDE
     Indication: THYROID CANCER
     Route: 048
     Dates: start: 20191116
  2. ALBUTEROL. [Concomitant]
     Active Substance: ALBUTEROL
  3. DIPHEN/ATROP [Concomitant]
     Active Substance: ATROPINE SULFATE\DIPHENOXYLATE
  4. MORPHINE [Concomitant]
     Active Substance: MORPHINE
  5. HYDRO/APAP [Concomitant]
     Active Substance: ACETAMINOPHEN\HYDROCODONE
  6. SPIRONOLACT [Concomitant]
     Active Substance: SPIRONOLACTONE
  7. LORAZEPAM. [Concomitant]
     Active Substance: LORAZEPAM
  8. BRILINTA [Concomitant]
     Active Substance: TICAGRELOR
  9. DULOXETINE. [Concomitant]
     Active Substance: DULOXETINE
  10. AMOX/KCLAV [Concomitant]
  11. LOSARTAN POT [Concomitant]
     Active Substance: LOSARTAN POTASSIUM
  12. SULF CL MICRO [Concomitant]
  13. AMLODIPINE [Concomitant]
     Active Substance: AMLODIPINE BESYLATE
  14. HYDROXZPAM [Concomitant]
  15. ALPRAZOLAM. [Concomitant]
     Active Substance: ALPRAZOLAM
  16. CARVEDILOL. [Concomitant]
     Active Substance: CARVEDILOL
  17. FUROSEMIDE. [Concomitant]
     Active Substance: FUROSEMIDE
  18. HALOPHERIDOL [Concomitant]
  19. VENTOLIN HFA [Concomitant]
     Active Substance: ALBUTEROL SULFATE
  20. ATORVASTATIN [Concomitant]
     Active Substance: ATORVASTATIN
  21. LEVOTHYROXIN [Concomitant]
     Active Substance: LEVOTHYROXINE
  22. LISINOPRIL. [Concomitant]
     Active Substance: LISINOPRIL

REACTIONS (1)
  - Death [None]
